FAERS Safety Report 15504373 (Version 1)
Quarter: 2018Q4

REPORT INFORMATION
  Report Type: Spontaneous
  Country: ES (occurrence: ES)
  Receive Date: 20181016
  Receipt Date: 20181016
  Transmission Date: 20190205
  Serious: Yes (Hospitalization)
  Sender: FDA-Public Use
  Company Number: ES-TEVA-2018-ES-964268

PATIENT
  Age: 32 Year
  Sex: Male

DRUGS (2)
  1. AUGMENTINE 500 MG/125 MG COMPRIMIDOS RECUBIERTOS CON PEL?CULA. 30 COMP [Concomitant]
     Indication: TOOTH INFECTION
     Route: 048
     Dates: start: 201508
  2. IBUPROFENO (1769A) [Suspect]
     Active Substance: IBUPROFEN
     Indication: TOOTH INFECTION
     Route: 048
     Dates: start: 201508

REACTIONS (1)
  - Acute pulmonary oedema [Recovered/Resolved]

NARRATIVE: CASE EVENT DATE: 20150810
